FAERS Safety Report 23491899 (Version 1)
Quarter: 2024Q1

REPORT INFORMATION
  Report Type: Spontaneous
  Country: US (occurrence: US)
  Receive Date: 20240207
  Receipt Date: 20240207
  Transmission Date: 20240410
  Serious: Yes (Life-Threatening, Other)
  Sender: FDA-Public Use
  Company Number: US-ALKEM LABORATORIES LIMITED-US-ALKEM-2024-01047

PATIENT
  Age: 55 Year
  Sex: Male

DRUGS (1)
  1. METFORMIN HYDROCHLORIDE [Suspect]
     Active Substance: METFORMIN HYDROCHLORIDE
     Indication: Diabetes mellitus
     Dosage: 850 MILLIGRAM, QID
     Route: 065

REACTIONS (6)
  - Blindness [Recovered/Resolved]
  - Osmotic demyelination syndrome [Unknown]
  - Blood sodium decreased [Recovered/Resolved]
  - Lactic acidosis [Recovered/Resolved]
  - Hypothermia [Recovered/Resolved]
  - Intentional overdose [Unknown]
